FAERS Safety Report 5066103-6 (Version None)
Quarter: 2006Q3

REPORT INFORMATION
  Report Type: 
  Country: None (occurrence: None)
  Receive Date: 20060725
  Receipt Date: 20060712
  Transmission Date: 20061208
  Serious: Yes (Hospitalization)
  Sender: FDA-Public Use
  Company Number: 230028M06FRA

PATIENT
  Age: 37 Year
  Sex: Female

DRUGS (4)
  1. REBIF [Suspect]
     Indication: RELAPSING-REMITTING MULTIPLE SCLEROSIS
     Dosage: 22 MCG, 3 IN 1 WEEKS, SUBCUTANEOUS
     Route: 058
     Dates: start: 20040615
  2. IMURAN [Suspect]
     Dosage: ORAL
     Route: 048
     Dates: start: 19970115, end: 20000115
  3. AVONEX [Suspect]
     Dosage: INTRAMUSCULAR
     Route: 030
     Dates: start: 20000115, end: 20040115
  4. COPAXONE [Suspect]
     Dosage: , ONCE

REACTIONS (1)
  - PAPILLARY THYROID CANCER [None]
